FAERS Safety Report 7492562-5 (Version None)
Quarter: 2011Q2

REPORT INFORMATION
  Report Type: 
  Country: None (occurrence: None)
  Receive Date: 20110519
  Receipt Date: 20110420
  Transmission Date: 20111010
  Serious: No
  Sender: FDA-Public Use
  Company Number: US-BAYER-2011-035228

PATIENT
  Sex: Male
  Weight: 77 kg

DRUGS (6)
  1. DILTIAZEM [Concomitant]
  2. PREDNISONE [Concomitant]
  3. ALEVE (CAPLET) [Suspect]
     Indication: ANALGESIC THERAPY
     Dosage: 1 DF, UNK
     Route: 048
  4. METFORMIN HCL [Concomitant]
  5. COUMADIN [Concomitant]
  6. LUPRON [Concomitant]

REACTIONS (1)
  - HYPERHIDROSIS [None]
